FAERS Safety Report 4455804-6 (Version None)
Quarter: 2004Q3

REPORT INFORMATION
  Report Type: 
  Country: None (occurrence: None)
  Receive Date: 20040917
  Receipt Date: 20040830
  Transmission Date: 20050211
  Serious: Yes (Hospitalization, Other)
  Sender: FDA-Public Use
  Company Number: DE_040814216

PATIENT
  Age: 84 Year
  Sex: Female

DRUGS (5)
  1. ZYPREXA [Suspect]
     Indication: DEPRESSION
     Dosage: 2L5 MG DAY
     Dates: start: 20030811
  2. ZYPREXA [Suspect]
     Indication: PARANOIA
     Dosage: 2L5 MG DAY
     Dates: start: 20030811
  3. CANDESARTAN CILEXETIL W/HYDROCHLOROTHIAZIDE [Concomitant]
  4. ACETYLSALICYLIC ACID SRT [Concomitant]
  5. DIPIPERON/GFR/(PIPAMPERONE) [Concomitant]

REACTIONS (5)
  - ANTIBODY TEST POSITIVE [None]
  - AUTOIMMUNE HEPATITIS [None]
  - DEMENTIA [None]
  - NERVOUS SYSTEM DISORDER [None]
  - SYSTEMIC LUPUS ERYTHEMATOSUS [None]
